FAERS Safety Report 15027343 (Version 1)
Quarter: 2018Q2

REPORT INFORMATION
  Report Type: Spontaneous
  Country: US (occurrence: US)
  Receive Date: 20180619
  Receipt Date: 20180619
  Transmission Date: 20180711
  Serious: No
  Sender: FDA-Public Use
  Company Number: US-LUPIN PHARMACEUTICALS INC.-2018-02409

PATIENT
  Age: 25 Year
  Sex: Male

DRUGS (3)
  1. PROCAINE [Concomitant]
     Active Substance: PROCAINE
     Indication: PRODUCT USED FOR UNKNOWN INDICATION
     Dosage: 12 DF, (TOTAL 0.5 TO 1 CC OF PRESERVATIVE-FREE 1% PROCAINE  INJECTION)
     Route: 065
  2. OMEPRAZOLE. [Suspect]
     Active Substance: OMEPRAZOLE
     Indication: OESOPHAGITIS
     Dosage: UNK
     Route: 065
  3. PROCAINE [Concomitant]
     Active Substance: PROCAINE
     Dosage: 3 ML, (INTRAVENOUSLY AS AN IV PUSH OF 1 TO 3 MIN)
     Route: 040

REACTIONS (1)
  - Constipation [Not Recovered/Not Resolved]
